FAERS Safety Report 5916005-5 (Version None)
Quarter: 2008Q4

REPORT INFORMATION
  Report Type: 
  Country: None (occurrence: None)
  Receive Date: 20081013
  Receipt Date: 20081003
  Transmission Date: 20090506
  Serious: Yes (Hospitalization)
  Sender: FDA-Public Use
  Company Number: FR-JNJFOC-20081001005

PATIENT
  Sex: Female

DRUGS (13)
  1. RISPERDAL [Suspect]
     Indication: DEPRESSION
     Route: 048
  2. ZAMUDOL [Suspect]
     Indication: PAIN
     Route: 048
  3. RIVOTRIL [Suspect]
     Indication: PAIN
     Route: 048
  4. ALDALIX [Suspect]
     Indication: HYPERTENSION
     Route: 048
  5. CITALOPRAM HYDROBROMIDE [Suspect]
     Indication: DEPRESSION
     Route: 048
  6. NEXIUM [Concomitant]
  7. EUPRESSYL [Concomitant]
     Route: 065
  8. NAFTIDROFURYL [Concomitant]
  9. ART 50 [Concomitant]
     Route: 065
  10. CELLUVISC [Concomitant]
     Route: 065
  11. FORLAX [Concomitant]
     Route: 065
  12. FOSAMAX [Concomitant]
     Route: 065
  13. DEBRIDAT [Concomitant]
     Route: 065

REACTIONS (3)
  - FALL [None]
  - RENAL FAILURE [None]
  - RHABDOMYOLYSIS [None]
